FAERS Safety Report 8800958 (Version 2)
Quarter: 2012Q4

REPORT INFORMATION
  Report Type: 
  Country: JP (occurrence: JP)
  Receive Date: 20120921
  Receipt Date: 20121113
  Transmission Date: 20130627
  Serious: Yes (Other)
  Sender: FDA-Public Use
  Company Number: JP-ASTELLAS-2012JP006414

PATIENT
  Sex: Male
  Weight: 53 kg

DRUGS (17)
  1. PROGRAF [Suspect]
     Indication: IMMUNOSUPPRESSANT DRUG THERAPY
     Dosage: 2 mg, bid
     Route: 048
     Dates: start: 201104, end: 20110911
  2. PROGRAF [Suspect]
     Dosage: 3.5 mg, Unknown/D
     Route: 048
     Dates: start: 20110912, end: 20110920
  3. PROGRAF [Suspect]
     Dosage: 3 mg, Unknown/D
     Route: 048
     Dates: start: 20110921
  4. CELLCEPT                           /01275102/ [Suspect]
     Indication: IMMUNOSUPPRESSANT DRUG THERAPY
     Dosage: 500 mg, bid
     Route: 048
     Dates: start: 201104
  5. CELLCEPT                           /01275102/ [Suspect]
     Dosage: 500 mg, Unknown/D
     Route: 048
     Dates: end: 20110912
  6. VALIXA [Concomitant]
     Indication: CYTOMEGALOVIRUS INFECTION
     Dosage: 450 mg, UID/QD
     Route: 048
     Dates: start: 20110707, end: 20110921
  7. PREDONINE                          /00016201/ [Concomitant]
     Indication: IMMUNOSUPPRESSANT DRUG THERAPY
     Dosage: 5 mg, bid
     Route: 048
     Dates: start: 201104, end: 20110715
  8. PREDONINE                          /00016201/ [Concomitant]
     Dosage: 9 mg, Unknown/D
     Route: 048
     Dates: start: 20110716, end: 20110813
  9. PREDONINE                          /00016201/ [Concomitant]
     Dosage: 8 mg, Unknown/D
     Route: 048
     Dates: start: 20110814, end: 20110912
  10. PREDONINE                          /00016201/ [Concomitant]
     Dosage: 7 mg, Unknown/D
     Route: 048
     Dates: start: 20110913
  11. CRESTOR [Concomitant]
     Indication: HYPERLIPIDAEMIA
     Dosage: 10 mg, UID/QD
     Route: 048
     Dates: start: 201104
  12. ZETIA [Concomitant]
     Indication: HYPERLIPIDAEMIA
     Dosage: 10 mg, UID/QD
     Route: 048
     Dates: start: 201104
  13. TAKEPRON [Concomitant]
     Indication: PROPHYLAXIS AGAINST GASTROINTESTINAL ULCER
     Dosage: 15 mg, UID/QD
     Route: 048
     Dates: start: 201104
  14. BAYASPIRIN [Concomitant]
     Indication: MYOCARDIAL ISCHAEMIA
     Dosage: 100 mg, UID/QD
     Route: 048
     Dates: start: 201104
  15. BAKTAR [Concomitant]
     Indication: PROPHYLAXIS
     Dosage: UNK
     Route: 048
     Dates: start: 201104
  16. RENIVACE [Concomitant]
     Indication: HYPERTENSION
     Dosage: 2.5 mg, UID/QD
     Route: 048
     Dates: start: 201104
  17. ACICLOVIR [Concomitant]
     Dosage: 800 mg, Unknown/D
     Route: 065

REACTIONS (3)
  - Renal impairment [Recovering/Resolving]
  - Cytomegalovirus infection [Recovering/Resolving]
  - Neutrophil count decreased [Recovering/Resolving]
